FAERS Safety Report 17457407 (Version 1)
Quarter: 2020Q1

REPORT INFORMATION
  Report Type: Spontaneous
  Country: US (occurrence: US)
  Receive Date: 20200225
  Receipt Date: 20200225
  Transmission Date: 20200409
  Serious: Yes (Hospitalization, Other)
  Sender: FDA-Public Use
  Company Number: US-CLOVIS ONCOLOGY-CLO-2020-000150

PATIENT
  Sex: Female

DRUGS (1)
  1. RUBRACA [Suspect]
     Active Substance: RUCAPARIB CAMSYLATE
     Indication: OVARIAN CANCER RECURRENT
     Dosage: 600 MG, BID
     Route: 048
     Dates: start: 20191230, end: 202002

REACTIONS (4)
  - Herpes zoster [Not Recovered/Not Resolved]
  - Blister infected [Unknown]
  - Pain [Unknown]
  - Haemoglobin decreased [Unknown]
